FAERS Safety Report 11500552 (Version 2)
Quarter: 2015Q4

REPORT INFORMATION
  Report Type: Spontaneous
  Country: US (occurrence: US)
  Receive Date: 20150914
  Receipt Date: 20151005
  Transmission Date: 20160304
  Serious: No
  Sender: FDA-Public Use
  Company Number: US-PFIZER INC-2015293694

PATIENT
  Age: 82 Year
  Sex: Female

DRUGS (5)
  1. GABAPENTIN. [Suspect]
     Active Substance: GABAPENTIN
     Indication: NEURALGIA
     Dosage: 300 MG, 3X/DAY
     Dates: start: 201506, end: 201509
  2. ALENDRONATE [Concomitant]
     Active Substance: ALENDRONATE SODIUM
     Dosage: 40 MG, WEEKLY
     Dates: start: 2012
  3. TRAMADOL. [Concomitant]
     Active Substance: TRAMADOL
     Dosage: 50 MG, 3X/DAY
     Dates: start: 2007
  4. HYDROTHIAZIDE [Concomitant]
     Dosage: 25 MG, DAILY
     Dates: start: 1995
  5. LEVOTHYROXINE. [Concomitant]
     Active Substance: LEVOTHYROXINE
     Dosage: 100 ?G, DAILY
     Dates: start: 1995

REACTIONS (8)
  - Nausea [Unknown]
  - Nightmare [Unknown]
  - Night sweats [Unknown]
  - Terminal insomnia [Unknown]
  - Drug ineffective for unapproved indication [Unknown]
  - Feeling hot [Unknown]
  - Peripheral coldness [Unknown]
  - Pain [Unknown]

NARRATIVE: CASE EVENT DATE: 20150602
